FAERS Safety Report 22057213 (Version 1)
Quarter: 2023Q1

REPORT INFORMATION
  Report Type: Spontaneous
  Country: DE (occurrence: DE)
  Receive Date: 20230303
  Receipt Date: 20230303
  Transmission Date: 20230417
  Serious: Yes (Hospitalization)
  Sender: FDA-Public Use
  Company Number: DE-JNJFOC-20230236880

PATIENT
  Age: 84 Year
  Sex: Female
  Weight: 55 kg

DRUGS (3)
  1. DEXAMETHASONE [Suspect]
     Active Substance: DEXAMETHASONE
     Indication: Plasma cell myeloma
     Dosage: 20 MG, QD, (DAILY DOSE WAS 20 MG)
     Route: 065
     Dates: start: 20230123
  2. VELCADE [Suspect]
     Active Substance: BORTEZOMIB
     Indication: Plasma cell myeloma
     Dosage: 2.3 MG, QD, (DAILY DOSE WAS 2.3 MG)
     Route: 058
     Dates: start: 20220614, end: 20220729
  3. VELCADE [Suspect]
     Active Substance: BORTEZOMIB
     Dosage: 2.1 MG, (LATEST DOSAGE BEFORE EVENT ONSET WAS 2.1 MG)
     Route: 058
     Dates: start: 20230123

REACTIONS (2)
  - Plasma cell myeloma [Not Recovered/Not Resolved]
  - Thrombocytopenia [Not Recovered/Not Resolved]

NARRATIVE: CASE EVENT DATE: 20230208
